FAERS Safety Report 5312611-X (Version None)
Quarter: 2007Q2

REPORT INFORMATION
  Report Type: 
  Country: None (occurrence: None)
  Receive Date: 20070430
  Receipt Date: 20061211
  Transmission Date: 20071010
  Serious: No
  Sender: FDA-Public Use
  Company Number: 2006UW27398

PATIENT
  Age: 78 Year
  Sex: Female
  Weight: 63.5 kg

DRUGS (8)
  1. NEXIUM [Suspect]
     Indication: BARRETT'S OESOPHAGUS
     Route: 048
     Dates: start: 20010101, end: 20060901
  2. LIPITOR [Concomitant]
  3. ACTONEL [Concomitant]
  4. VITAMIN E [Concomitant]
  5. CALCITRIOL [Concomitant]
  6. ECOTRIN [Concomitant]
  7. VITAMIN D [Concomitant]
  8. ALEVE [Concomitant]

REACTIONS (2)
  - LIP DISCOLOURATION [None]
  - TONGUE DISCOLOURATION [None]
